FAERS Safety Report 10061984 (Version 1)
Quarter: 2014Q2

REPORT INFORMATION
  Report Type: Spontaneous
  Country: GB (occurrence: None)
  Receive Date: 20140403
  Receipt Date: 20140403
  Transmission Date: 20141212
  Serious: Yes (Disabling, Other)
  Sender: FDA-Public Use
  Company Number: AUR-APL-2014-04010

PATIENT
  Age: 59 Year
  Sex: Female
  Weight: 72 kg

DRUGS (9)
  1. QUETIAPINE (QUETIAPINE) [Suspect]
     Indication: CYCLOTHYMIC DISORDER
     Dosage: 100 MG (50 MG, 2 IN 1 D)
     Route: 048
     Dates: start: 201310, end: 201401
  2. THYROXINE [Suspect]
     Indication: PRODUCT USED FOR UNKNOWN INDICATION
     Route: 048
  3. THYROXINE [Suspect]
     Indication: ARTHRALGIA
     Route: 048
  4. DHC-CONTINUS (DIHYDROCODEINE BITARTRATE) [Concomitant]
  5. LANSOPRAZOLE (LANSOPRAZOLE) [Concomitant]
  6. OESTROGEN (DIETHYLSTILBESTROL) [Concomitant]
  7. TRAZODONE [Concomitant]
  8. VISCOTEARS (CARBOMER) [Concomitant]
  9. ZOPICLONE [Concomitant]

REACTIONS (34)
  - Drug interaction [None]
  - Endocrine ophthalmopathy [None]
  - Mental disorder [None]
  - Hypothyroidism [None]
  - Weight decreased [None]
  - Hypothermia [None]
  - Heart rate decreased [None]
  - Aphagia [None]
  - Constipation [None]
  - Tremor [None]
  - Feeling cold [None]
  - Speech disorder [None]
  - Anxiety [None]
  - Suicidal ideation [None]
  - Madarosis [None]
  - Pruritus [None]
  - Dry skin [None]
  - Arthralgia [None]
  - Myalgia [None]
  - Lethargy [None]
  - Tongue discolouration [None]
  - Glossodynia [None]
  - Amnesia [None]
  - Feeling abnormal [None]
  - Urinary tract infection [None]
  - Pharyngitis [None]
  - Ear infection [None]
  - Asthenia [None]
  - Mobility decreased [None]
  - Depression [None]
  - Decreased appetite [None]
  - Post viral fatigue syndrome [None]
  - Fasciitis [None]
  - Blood pressure increased [None]
